FAERS Safety Report 18495290 (Version 2)
Quarter: 2020Q4

REPORT INFORMATION
  Report Type: Spontaneous
  Country: PL (occurrence: PL)
  Receive Date: 20201112
  Receipt Date: 20201203
  Transmission Date: 20210114
  Serious: Yes (Hospitalization)
  Sender: FDA-Public Use
  Company Number: PL-TEVA-2020-PL-1847463

PATIENT
  Age: 47 Year
  Sex: Female

DRUGS (2)
  1. HYDROXYCARBAMID TEVA [Suspect]
     Active Substance: HYDROXYUREA
     Indication: ESSENTIAL THROMBOCYTHAEMIA
     Route: 065
  2. ANAGRELIDE. [Concomitant]
     Active Substance: ANAGRELIDE HYDROCHLORIDE

REACTIONS (2)
  - Colon cancer [Unknown]
  - Haemoglobin decreased [Recovered/Resolved]
